FAERS Safety Report 9207354 (Version 2)
Quarter: 2013Q4

REPORT INFORMATION
  Report Type: Spontaneous
  Country: US (occurrence: US)
  Receive Date: 20130403
  Receipt Date: 20131218
  Transmission Date: 20140711
  Serious: Yes (Other)
  Sender: FDA-Public Use
  Company Number: US-BAYER-2013-040109

PATIENT
  Age: 43 Year
  Sex: Female

DRUGS (4)
  1. YAZ [Suspect]
     Dosage: UNK
     Dates: start: 20080527, end: 200911
  2. YASMIN [Suspect]
     Dosage: UNK
     Dates: start: 20080527, end: 200911
  3. FINACEA [Concomitant]
     Dosage: UNK
  4. CLINDAMYCIN PHOSPHATE [Concomitant]

REACTIONS (6)
  - Cholelithiasis [None]
  - Injury [None]
  - Pain [None]
  - Emotional distress [None]
  - Anxiety [None]
  - Psychological trauma [None]
